FAERS Safety Report 10936269 (Version 1)
Quarter: 2015Q1

REPORT INFORMATION
  Report Type: Spontaneous
  Country: US (occurrence: None)
  Receive Date: 20150320
  Receipt Date: 20150320
  Transmission Date: 20150721
  Serious: No
  Sender: FDA-Public Use
  Company Number: None

PATIENT
  Age: 66 Year
  Sex: Male
  Weight: 90.72 kg

DRUGS (3)
  1. METOPROLOL SUCC ER [Suspect]
     Active Substance: METOPROLOL SUCCINATE
     Indication: BLOOD PRESSURE
     Dosage: TAKEN BY MOUTH, 1 PILL
     Dates: start: 20120901, end: 20150210
  2. SIMVASTATIN. [Concomitant]
     Active Substance: SIMVASTATIN
  3. LOSARTAN POTASSIIUM [Concomitant]

REACTIONS (3)
  - Skin exfoliation [None]
  - Skin haemorrhage [None]
  - Skin induration [None]

NARRATIVE: CASE EVENT DATE: 20121001
